FAERS Safety Report 13510136 (Version 3)
Quarter: 2019Q4

REPORT INFORMATION
  Report Type: Spontaneous
  Country: FR (occurrence: FR)
  Receive Date: 20170503
  Receipt Date: 20191204
  Transmission Date: 20200122
  Serious: Yes (Hospitalization, Other)
  Sender: FDA-Public Use
  Company Number: FR-UCBSA-2017016508

PATIENT
  Age: 5 Year
  Sex: Male
  Weight: 36 kg

DRUGS (5)
  1. QUASYM [Suspect]
     Active Substance: METHYLPHENIDATE HYDROCHLORIDE
     Indication: DISTURBANCE IN ATTENTION
     Dosage: 10 MG, ONCE DAILY (QD)
     Route: 048
     Dates: start: 201606
  2. KEPPRA [Suspect]
     Active Substance: LEVETIRACETAM
     Indication: PARTIAL SEIZURES
     Dosage: UNK
     Route: 048
     Dates: start: 201404
  3. QUASYM [Suspect]
     Active Substance: METHYLPHENIDATE HYDROCHLORIDE
     Dosage: 20 MG, ONCE DAILY (QD)
     Route: 048
     Dates: end: 201704
  4. KEPPRA [Suspect]
     Active Substance: LEVETIRACETAM
     Dosage: GRADUAL INCREASE/INCREASE
     Route: 048
  5. KEPPRA [Suspect]
     Active Substance: LEVETIRACETAM
     Dosage: 400 MG, 2X/DAY (BID) ((GRADUAL DOSE INCREASE UP TO 4 ML 2/DAY, EQUIVALENT TO 11 MG/KG 2/DAY))
     Route: 048

REACTIONS (3)
  - Off label use [Unknown]
  - Bradycardia [Recovered/Resolved]
  - Electrocardiogram PR prolongation [Recovered/Resolved]

NARRATIVE: CASE EVENT DATE: 201404
